FAERS Safety Report 8937483 (Version 2)
Quarter: 2013Q1

REPORT INFORMATION
  Report Type: Spontaneous
  Country: DK (occurrence: CA)
  Receive Date: 20121130
  Receipt Date: 20130222
  Transmission Date: 20140127
  Serious: Yes (Death)
  Sender: FDA-Public Use
  Company Number: CA-FRI-1000040714

PATIENT
  Age: 13 Year
  Sex: Male

DRUGS (2)
  1. CELEXA [Suspect]
     Indication: DEPRESSION
     Dosage: 1.5 DF
  2. DAYQUIL [Concomitant]
     Dosage: ONE DOSE ONLY ON DAY BEFORE DEATH

REACTIONS (4)
  - Completed suicide [Fatal]
  - Aggression [Fatal]
  - Insomnia [Fatal]
  - Off label use [Fatal]
